FAERS Safety Report 7221428-0 (Version None)
Quarter: 2011Q1

REPORT INFORMATION
  Report Type: 
  Country: None (occurrence: None)
  Receive Date: 20110112
  Receipt Date: 20110105
  Transmission Date: 20110831
  Serious: Yes (Hospitalization, Other)
  Sender: FDA-Public Use
  Company Number: US-ABBOTT-11P-163-0695700-00

PATIENT
  Age: 65 Year
  Sex: Female

DRUGS (7)
  1. MULTI-VITAMIN [Concomitant]
     Indication: PRODUCT USED FOR UNKNOWN INDICATION
  2. LOMOTIL [Concomitant]
     Indication: DIARRHOEA
     Dosage: 1-2 TABLETS FOR DIARRHEA
  3. HUMIRA [Suspect]
     Indication: CROHN'S DISEASE
     Dates: start: 20080301, end: 20080618
  4. CHOLESTYRAMINE [Concomitant]
     Indication: CROHN'S DISEASE
  5. HUMIRA [Suspect]
     Dates: start: 20110106
  6. PENTASA [Concomitant]
     Indication: CROHN'S DISEASE
     Dosage: 400MG DAILY
  7. IMURAN [Concomitant]
     Indication: CROHN'S DISEASE

REACTIONS (4)
  - PAIN [None]
  - DIVERTICULITIS [None]
  - PYREXIA [None]
  - HIP ARTHROPLASTY [None]
